FAERS Safety Report 21641962 (Version 1)
Quarter: 2022Q4

REPORT INFORMATION
  Report Type: Report from Study
  Country: US (occurrence: US)
  Receive Date: 20221125
  Receipt Date: 20221125
  Transmission Date: 20230112
  Serious: Yes (Other)
  Sender: FDA-Public Use
  Company Number: US-PUMA BIOTECHNOLOGY, INC.-2022-PUM-US002149

PATIENT

DRUGS (3)
  1. NERLYNX [Suspect]
     Active Substance: NERATINIB
     Indication: Breast cancer female
     Dosage: 120 MG, DAILY
     Route: 048
     Dates: start: 20221020, end: 20221117
  2. NERLYNX [Suspect]
     Active Substance: NERATINIB
     Indication: Metastases to lymph nodes
  3. IMODIUM [Concomitant]
     Active Substance: LOPERAMIDE HYDROCHLORIDE
     Indication: Prophylaxis against diarrhoea

REACTIONS (4)
  - Renal impairment [Unknown]
  - Diarrhoea [Not Recovered/Not Resolved]
  - Underdose [Unknown]
  - Off label use [Unknown]

NARRATIVE: CASE EVENT DATE: 20220101
